FAERS Safety Report 4848028-1 (Version None)
Quarter: 2005Q4

REPORT INFORMATION
  Report Type: 
  Country: None (occurrence: None)
  Receive Date: 20051207
  Receipt Date: 20051207
  Transmission Date: 20060501
  Serious: Yes (Other)
  Sender: FDA-Public Use
  Company Number: None

PATIENT
  Sex: Female

DRUGS (1)
  1. ALINIA TABLETS 500 MG [Suspect]
     Indication: CLOSTRIDIUM COLITIS
     Dosage: 1/2 TAB (250 MG) BID  PO
     Route: 048
     Dates: start: 20051123, end: 20051126

REACTIONS (1)
  - ERYTHEMA [None]
